FAERS Safety Report 10225922 (Version 2)
Quarter: 2014Q2

REPORT INFORMATION
  Report Type: Spontaneous
  Country: US (occurrence: US)
  Receive Date: 20140609
  Receipt Date: 20140609
  Transmission Date: 20141212
  Serious: Yes (Hospitalization, Other)
  Sender: FDA-Public Use
  Company Number: US-ASTELLAS-2013US004647

PATIENT
  Sex: Male

DRUGS (1)
  1. PROGRAF [Suspect]
     Indication: HEART TRANSPLANT
     Route: 048
     Dates: start: 20040415

REACTIONS (4)
  - Lung neoplasm malignant [Unknown]
  - Pneumothorax [Unknown]
  - Metastases to liver [Unknown]
  - Metastases to central nervous system [Unknown]
